FAERS Safety Report 5384691-7 (Version None)
Quarter: 2007Q3

REPORT INFORMATION
  Report Type: 
  Country: None (occurrence: None)
  Receive Date: 20070711
  Receipt Date: 20070704
  Transmission Date: 20080115
  Serious: Yes (Other)
  Sender: FDA-Public Use
  Company Number: HU-PFIZER INC-2007046883

PATIENT
  Age: 74 Year
  Sex: Female
  Weight: 58 kg

DRUGS (2)
  1. CORTEF [Suspect]
     Indication: ADRENAL INSUFFICIENCY
     Dosage: DAILY DOSE:10MG
     Route: 048
     Dates: start: 20010101, end: 20030101
  2. PENTOXIFYLLINE [Concomitant]
     Route: 048

REACTIONS (3)
  - ANGINA PECTORIS [None]
  - HYPERTENSION [None]
  - PRURITUS [None]
